FAERS Safety Report 22985074 (Version 2)
Quarter: 2023Q4

REPORT INFORMATION
  Report Type: Spontaneous
  Country: US (occurrence: US)
  Receive Date: 20230926
  Receipt Date: 20231017
  Transmission Date: 20240109
  Serious: No
  Sender: FDA-Public Use
  Company Number: US-BRISTOL-MYERS SQUIBB COMPANY-2023-136112

PATIENT
  Age: 81 Year
  Sex: Female

DRUGS (3)
  1. POMALYST [Interacting]
     Active Substance: POMALIDOMIDE
     Indication: Plasma cell myeloma in remission
     Route: 048
  2. POMALYST [Interacting]
     Active Substance: POMALIDOMIDE
     Route: 048
  3. METOPROLOL [Interacting]
     Active Substance: METOPROLOL
     Indication: Product used for unknown indication

REACTIONS (3)
  - Hypotension [Unknown]
  - Off label use [Unknown]
  - Drug interaction [Unknown]
